FAERS Safety Report 9016859 (Version 1)
Quarter: 2013Q1

REPORT INFORMATION
  Report Type: Spontaneous
  Country: US (occurrence: US)
  Receive Date: 20130117
  Receipt Date: 20130117
  Transmission Date: 20140127
  Serious: Yes (Hospitalization)
  Sender: FDA-Public Use
  Company Number: US-ELI_LILLY_AND_COMPANY-US201201006745

PATIENT
  Age: 73 Year
  Sex: Female

DRUGS (13)
  1. FORTEO [Suspect]
     Indication: OSTEOPOROSIS
     Dosage: 20 UG, QD
     Dates: start: 201111
  2. FORTEO [Suspect]
     Dosage: 20 UG, QD
  3. FORTEO [Suspect]
     Dosage: 20 UG, QD
  4. SPIRIVA [Concomitant]
  5. ADVAIR [Concomitant]
  6. PROAIR                             /00972202/ [Concomitant]
     Indication: DYSPNOEA
     Dosage: UNK, PRN
  7. DIOVAN [Concomitant]
  8. ASPIRIN [Concomitant]
     Dosage: ONE, QD
  9. CALCIUM [Concomitant]
  10. VITAMIN B COMPLEX [Concomitant]
  11. VITAMIN E [Concomitant]
  12. VITAMIN D [Concomitant]
  13. FOLIC ACID [Concomitant]

REACTIONS (11)
  - Splenic rupture [Recovered/Resolved]
  - Euphoric mood [Not Recovered/Not Resolved]
  - Mood altered [Not Recovered/Not Resolved]
  - Feeling abnormal [Not Recovered/Not Resolved]
  - Fatigue [Unknown]
  - Initial insomnia [Not Recovered/Not Resolved]
  - Pain [Recovered/Resolved]
  - Nausea [Recovered/Resolved]
  - Vomiting [Recovered/Resolved]
  - Vitamin D increased [Recovered/Resolved]
  - Blood calcium increased [Recovered/Resolved]
